FAERS Safety Report 23188221 (Version 2)
Quarter: 2024Q1

REPORT INFORMATION
  Report Type: Spontaneous
  Country: US (occurrence: US)
  Receive Date: 20231115
  Receipt Date: 20240110
  Transmission Date: 20240410
  Serious: No
  Sender: FDA-Public Use
  Company Number: US-PFIZER INC-PV202300183613

PATIENT
  Age: 83 Year
  Sex: Female
  Weight: 66.667 kg

DRUGS (2)
  1. IBRANCE [Suspect]
     Active Substance: PALBOCICLIB
     Indication: Breast cancer metastatic
     Dosage: 125 MG
     Dates: start: 20230421, end: 20231002
  2. FULVESTRANT [Concomitant]
     Active Substance: FULVESTRANT
     Dosage: UNK
     Dates: start: 20230421, end: 202309

REACTIONS (2)
  - Tumour marker increased [Recovered/Resolved]
  - Neoplasm progression [Recovered/Resolved]

NARRATIVE: CASE EVENT DATE: 20230601
